FAERS Safety Report 8929257 (Version 1)
Quarter: 2012Q4

REPORT INFORMATION
  Report Type: Spontaneous
  Country: US (occurrence: None)
  Receive Date: 20121126
  Receipt Date: 20121126
  Transmission Date: 20130627
  Serious: Yes (Hospitalization, Other)
  Sender: FDA-Public Use
  Company Number: None

PATIENT
  Age: 60 Year
  Sex: Male
  Weight: 90.72 kg

DRUGS (2)
  1. CLOPIDOGREL 75 MG [Suspect]
     Indication: ANTICOAGULANT THERAPY
     Dates: start: 20120709, end: 20121016
  2. CLOPIDOGREL 75 MG [Suspect]
     Indication: ANTICOAGULANT THERAPY
     Dates: start: 20120709, end: 20121016

REACTIONS (6)
  - Rash [None]
  - Local swelling [None]
  - Infection [None]
  - Scratch [None]
  - Scar [None]
  - No therapeutic response [None]
